FAERS Safety Report 23154845 (Version 2)
Quarter: 2023Q4

REPORT INFORMATION
  Report Type: Spontaneous
  Country: US (occurrence: US)
  Receive Date: 20231107
  Receipt Date: 20231122
  Transmission Date: 20240110
  Serious: No
  Sender: FDA-Public Use
  Company Number: US-LEADINGPHARMA-US-2023LEASPO00326

PATIENT
  Age: 81 Year
  Sex: Female
  Weight: 52.16 kg

DRUGS (1)
  1. LORAZEPAM [Suspect]
     Active Substance: LORAZEPAM
     Indication: Sleep disorder
     Route: 048

REACTIONS (7)
  - Impaired work ability [Recovered/Resolved]
  - Abnormal behaviour [Recovered/Resolved]
  - Phobia of driving [Recovered/Resolved]
  - Insomnia [Recovered/Resolved]
  - Headache [Recovered/Resolved]
  - Product substitution issue [Unknown]
  - Drug ineffective for unapproved indication [Unknown]
